FAERS Safety Report 5843085-8 (Version None)
Quarter: 2008Q3

REPORT INFORMATION
  Report Type: 
  Country: None (occurrence: None)
  Receive Date: 20080813
  Receipt Date: 20080806
  Transmission Date: 20090109
  Serious: Yes (Other)
  Sender: FDA-Public Use
  Company Number: US-ROCHE-579876

PATIENT
  Sex: Male

DRUGS (2)
  1. PEG-INTERFERON A-2A (RO 25-8310) [Suspect]
     Dosage: FORM:PFS
     Route: 065
     Dates: start: 20080423, end: 20080623
  2. RIBAVIRIN [Suspect]
     Route: 065
     Dates: start: 20080423, end: 20080623

REACTIONS (1)
  - THROMBOSIS [None]
